FAERS Safety Report 4556628-1 (Version None)
Quarter: 2005Q1

REPORT INFORMATION
  Report Type: 
  Country: None (occurrence: None)
  Receive Date: 20050120
  Receipt Date: 20050117
  Transmission Date: 20050727
  Serious: Yes (Other)
  Sender: FDA-Public Use
  Company Number: PHRM2005FR00557

PATIENT
  Age: 75 Year
  Sex: Male

DRUGS (1)
  1. TAREG [Suspect]
     Indication: HYPERTENSION
     Dosage: 80 MG, QD
     Route: 048

REACTIONS (5)
  - BLOOD AMYLASE INCREASED [None]
  - DIARRHOEA [None]
  - FATIGUE [None]
  - LIPASE INCREASED [None]
  - PANCREATIC DISORDER [None]
